FAERS Safety Report 5319903-9 (Version None)
Quarter: 2007Q2

REPORT INFORMATION
  Report Type: 
  Country: None (occurrence: None)
  Receive Date: 20070503
  Receipt Date: 20070419
  Transmission Date: 20071010
  Serious: Yes (Other)
  Sender: FDA-Public Use
  Company Number: 155466USA

PATIENT
  Age: 23 Year
  Sex: Male

DRUGS (2)
  1. CLOZAPINE [Suspect]
     Indication: AFFECTIVE DISORDER
     Dosage: (300 MG)
     Dates: start: 20060101
  2. CLOZAPINE [Suspect]
     Indication: SCHIZOPHRENIA
     Dosage: (300 MG)
     Dates: start: 20060101

REACTIONS (1)
  - DRUG TOXICITY [None]
